FAERS Safety Report 21932607 (Version 1)
Quarter: 2023Q1

REPORT INFORMATION
  Report Type: Spontaneous
  Country: US (occurrence: None)
  Receive Date: 20230131
  Receipt Date: 20230131
  Transmission Date: 20230418
  Serious: No
  Sender: FDA-Public Use
  Company Number: None

PATIENT

DRUGS (1)
  1. LAMOTRIGINE [Suspect]
     Active Substance: LAMOTRIGINE

REACTIONS (9)
  - Accidental overdose [None]
  - Hypoaesthesia [None]
  - Paraesthesia [None]
  - Dyskinesia [None]
  - Muscle spasticity [None]
  - Diplopia [None]
  - Dysarthria [None]
  - Product appearance confusion [None]
  - Product communication issue [None]
